FAERS Safety Report 24763908 (Version 1)
Quarter: 2024Q4

REPORT INFORMATION
  Report Type: Spontaneous
  Country: GB (occurrence: GB)
  Receive Date: 20241223
  Receipt Date: 20241223
  Transmission Date: 20250115
  Serious: Yes (Life-Threatening, Other)
  Sender: TEVA
  Company Number: None

PATIENT
  Age: 38 Year
  Sex: Female

DRUGS (1)
  1. SPIRONOLACTONE [Suspect]
     Active Substance: SPIRONOLACTONE
     Indication: Product used for unknown indication
     Dosage: 12.5MG
     Route: 065

REACTIONS (5)
  - Wheezing [Recovered/Resolved]
  - Lip swelling [Recovered/Resolved]
  - Pallor [Recovered/Resolved]
  - Pharyngeal swelling [Recovered/Resolved]
  - Vomiting [Recovered/Resolved]
